FAERS Safety Report 9448192 (Version 1)
Quarter: 2013Q3

REPORT INFORMATION
  Report Type: Spontaneous
  Country: TR (occurrence: None)
  Receive Date: 20130806
  Receipt Date: 20130806
  Transmission Date: 20140515
  Serious: Yes (Hospitalization)
  Sender: FDA-Public Use
  Company Number: IPC201307-000309

PATIENT
  Age: 29 Year
  Sex: Female

DRUGS (1)
  1. METFORMIN HYDROCHLORIDE [Suspect]

REACTIONS (8)
  - Vomiting [None]
  - Haemodialysis [None]
  - Alanine aminotransferase abnormal [None]
  - Aspartate aminotransferase abnormal [None]
  - Intentional overdose [None]
  - Vomiting [None]
  - Metabolic acidosis [None]
  - Blood alcohol increased [None]
